FAERS Safety Report 20572580 (Version 2)
Quarter: 2022Q1

REPORT INFORMATION
  Report Type: Spontaneous
  Country: JP (occurrence: JP)
  Receive Date: 20220309
  Receipt Date: 20220310
  Transmission Date: 20220424
  Serious: Yes (Other)
  Sender: FDA-Public Use
  Company Number: JP-PFIZER INC-202200348740

PATIENT
  Age: 74 Year
  Sex: Female

DRUGS (8)
  1. IRINOTECAN HYDROCHLORIDE [Suspect]
     Active Substance: IRINOTECAN HYDROCHLORIDE
     Indication: Neoplasm
     Dosage: 120 MG/M2, CYCLIC(EVERY 2 WEEKS)
  2. IRINOTECAN HYDROCHLORIDE [Suspect]
     Active Substance: IRINOTECAN HYDROCHLORIDE
     Dosage: REDUCED TO 80% OF THE INITIAL DOSE, CYCLIC(EVERY 2 WEEKS)
  3. IRINOTECAN HYDROCHLORIDE [Suspect]
     Active Substance: IRINOTECAN HYDROCHLORIDE
     Dosage: REDUCED TO 60% OF THE INITIAL DOSE BY THE NINTH CYCLE, CYCLIC(EVERY 2 WEEKS)
  4. LEUCOVORIN [Suspect]
     Active Substance: LEUCOVORIN
     Indication: Neoplasm
     Dosage: 300 MG/M2, CYCLIC(EVERY 2 WEEKS)
  5. OXALIPLATIN [Suspect]
     Active Substance: OXALIPLATIN
     Indication: Neoplasm
     Dosage: 65 MG/M2, CYCLIC(EVERY 2 WEEKS)
  6. OXALIPLATIN [Suspect]
     Active Substance: OXALIPLATIN
     Dosage: REDUCED TO 80% OF THE INITIAL DOSE, (EVERY 2 WEEKS)
  7. OXALIPLATIN [Suspect]
     Active Substance: OXALIPLATIN
     Dosage: REDUCED TO 60% OF THE INITIAL DOSE BY THE NINTH CYCLE (EVERY 2 WEEKS)
  8. FLUOROURACIL [Suspect]
     Active Substance: FLUOROURACIL
     Indication: Neoplasm
     Dosage: CONTINUOUS INFUSION OF 2400 MG/M2 OVER A 46-HOUR PERIOD, EVERY 2 WEEKS

REACTIONS (4)
  - Cardiac failure [Unknown]
  - Fatigue [Unknown]
  - Peripheral sensory neuropathy [Unknown]
  - Herpes zoster [Unknown]
